FAERS Safety Report 10049022 (Version 1)
Quarter: 2014Q1

REPORT INFORMATION
  Report Type: Spontaneous
  Country: FR (occurrence: FR)
  Receive Date: 20140331
  Receipt Date: 20140331
  Transmission Date: 20141002
  Serious: Yes (Life-Threatening, Hospitalization)
  Sender: FDA-Public Use
  Company Number: FR-ASTRAZENECA-2014SE21530

PATIENT
  Age: 21264 Day
  Sex: Male

DRUGS (3)
  1. PROPOFOL [Suspect]
     Route: 042
     Dates: start: 20131108, end: 20131108
  2. PROPOFOL [Suspect]
     Route: 042
     Dates: start: 20131108
  3. CELOCURINE [Suspect]
     Route: 042
     Dates: start: 20131108, end: 20131108

REACTIONS (2)
  - Respiratory acidosis [Recovered/Resolved]
  - Anaphylactic shock [Recovered/Resolved]
